FAERS Safety Report 19965994 (Version 2)
Quarter: 2021Q4

REPORT INFORMATION
  Report Type: Spontaneous
  Country: US (occurrence: US)
  Receive Date: 20211018
  Receipt Date: 20211125
  Transmission Date: 20220303
  Serious: No
  Sender: FDA-Public Use
  Company Number: US-PFIZER INC-202101227472

PATIENT
  Age: 61 Year
  Sex: Female
  Weight: 70.31 kg

DRUGS (2)
  1. GENOTROPIN [Suspect]
     Active Substance: SOMATROPIN
     Indication: Hypothalamo-pituitary disorder
     Dosage: UNK, 1X/DAY
     Dates: start: 2020
  2. NP THYROID [Concomitant]
     Active Substance: LEVOTHYROXINE\LIOTHYRONINE
     Indication: Hyperthyroidism
     Dosage: 180 MG, 1X/DAY (180MG ONCE DAILY)

REACTIONS (3)
  - Device power source issue [Unknown]
  - Intentional device use issue [Unknown]
  - Device information output issue [Unknown]
